FAERS Safety Report 9025453 (Version 1)
Quarter: 2013Q1

REPORT INFORMATION
  Report Type: Spontaneous
  Country: US (occurrence: US)
  Receive Date: 20130122
  Receipt Date: 20130122
  Transmission Date: 20140127
  Serious: Yes (Death, Hospitalization)
  Sender: FDA-Public Use
  Company Number: US-B.I. PHARMACEUTICALS,INC./RIDGEFIELD-2013-BI-00946BP

PATIENT
  Age: 63 Year
  Sex: Male

DRUGS (3)
  1. PRADAXA [Suspect]
     Indication: ATRIAL FIBRILLATION
     Dosage: 300 MG
     Dates: start: 20110811, end: 20110822
  2. PLAVIX [Concomitant]
     Dates: end: 20110822
  3. ASPIRIN [Concomitant]
     Dates: end: 20110822

REACTIONS (2)
  - Haemorrhage intracranial [Fatal]
  - Subarachnoid haemorrhage [Fatal]
